FAERS Safety Report 9443815 (Version 4)
Quarter: 2014Q1

REPORT INFORMATION
  Report Type: Spontaneous
  Country: US (occurrence: US)
  Receive Date: 20130806
  Receipt Date: 20140116
  Transmission Date: 20141002
  Serious: Yes (Hospitalization)
  Sender: FDA-Public Use
  Company Number: US-B.I. PHARMACEUTICALS,INC./RIDGEFIELD-2013-BI-23205BP

PATIENT
  Age: 87 Year
  Sex: Male
  Weight: 81.19 kg

DRUGS (13)
  1. PRADAXA [Suspect]
     Indication: ATRIAL FIBRILLATION
     Dosage: 300 MG
     Route: 048
     Dates: start: 20110201, end: 20110819
  2. LIPITOR [Concomitant]
     Dosage: 80 MG
     Route: 048
  3. FLOMAX [Concomitant]
     Dosage: 0.4 MG
     Route: 048
  4. ZETIA [Concomitant]
     Dosage: 10 MG
     Route: 048
  5. TOPROL XL [Concomitant]
     Dosage: 25 MG
     Route: 048
  6. PROTONIX [Concomitant]
  7. ASPIRIN [Concomitant]
  8. VITAMIN D [Concomitant]
  9. VITAMIN B12 [Concomitant]
  10. LUNESTA [Concomitant]
     Dosage: 2 MG
     Route: 048
  11. ZYLOPRIM [Concomitant]
     Dosage: 100 MG
     Route: 048
  12. ALTACE [Concomitant]
     Dosage: 10 MG
     Route: 048
  13. RYTHMOL [Concomitant]
     Dosage: 225 MG
     Route: 048

REACTIONS (1)
  - Gastrointestinal haemorrhage [Unknown]
